FAERS Safety Report 13236688 (Version 2)
Quarter: 2017Q2

REPORT INFORMATION
  Report Type: Spontaneous
  Country: US (occurrence: US)
  Receive Date: 20170215
  Receipt Date: 20170418
  Transmission Date: 20170830
  Serious: No
  Sender: FDA-Public Use
  Company Number: US-009507513-1701USA009244

PATIENT
  Age: 25 Year
  Sex: Female
  Weight: 74.83 kg

DRUGS (3)
  1. NEXPLANON [Suspect]
     Active Substance: ETONOGESTREL
     Dosage: UNK
     Route: 065
  2. NEXPLANON [Suspect]
     Active Substance: ETONOGESTREL
     Dosage: UNK
     Route: 065
  3. NEXPLANON [Suspect]
     Active Substance: ETONOGESTREL
     Indication: CONTRACEPTION
     Dosage: 1 DF, UNK
     Route: 065
     Dates: start: 20161011, end: 20170120

REACTIONS (10)
  - Complication associated with device [Recovered/Resolved]
  - Implant site swelling [Unknown]
  - Implant site hypoaesthesia [Unknown]
  - Complication associated with device [Recovered/Resolved]
  - Scar [Unknown]
  - Device deployment issue [Recovered/Resolved]
  - Implant site erythema [Unknown]
  - Implant site pruritus [Unknown]
  - Migration of implanted drug [Unknown]
  - Device breakage [Recovered/Resolved]

NARRATIVE: CASE EVENT DATE: 2016
